FAERS Safety Report 10857284 (Version 4)
Quarter: 2015Q2

REPORT INFORMATION
  Report Type: Spontaneous
  Country: US (occurrence: US)
  Receive Date: 20150223
  Receipt Date: 20150409
  Transmission Date: 20150821
  Serious: Yes (Hospitalization)
  Sender: FDA-Public Use
  Company Number: US-PFIZER INC-2015064147

PATIENT
  Age: 53 Year
  Sex: Female
  Weight: 91 kg

DRUGS (8)
  1. ALEVE [Concomitant]
     Active Substance: NAPROXEN SODIUM
     Dosage: UNK
     Dates: start: 2010
  2. TYLENOL [Concomitant]
     Active Substance: ACETAMINOPHEN
     Dosage: UNK
     Dates: start: 2000
  3. IMITREX [Suspect]
     Active Substance: SUMATRIPTAN\SUMATRIPTAN SUCCINATE
     Dosage: 2-3 TIMES A DAY
     Dates: start: 2010
  4. TOPAMAX [Suspect]
     Active Substance: TOPIRAMATE
     Indication: PROPHYLAXIS
     Dosage: 50 MG , 1 A DAY
     Dates: start: 2010
  5. VICODIN [Concomitant]
     Active Substance: ACETAMINOPHEN\HYDROCODONE BITARTRATE
     Dosage: HYDROCODONE BITARTRATE 5/PARACETAMOL 500
     Dates: start: 2010
  6. RELPAX [Suspect]
     Active Substance: ELETRIPTAN HYDROBROMIDE
     Indication: MIGRAINE
     Dosage: UNK
  7. RELPAX [Suspect]
     Active Substance: ELETRIPTAN HYDROBROMIDE
     Dosage: UNK, 2-3 TIMES A DAY
  8. IMITREX [Suspect]
     Active Substance: SUMATRIPTAN\SUMATRIPTAN SUCCINATE
     Indication: MIGRAINE
     Dosage: 3 A DAY

REACTIONS (2)
  - Injury [Not Recovered/Not Resolved]
  - Drug ineffective [Not Recovered/Not Resolved]

NARRATIVE: CASE EVENT DATE: 201501
